FAERS Safety Report 5718990-3 (Version None)
Quarter: 2008Q2

REPORT INFORMATION
  Report Type: 
  Country: None (occurrence: None)
  Receive Date: 20080423
  Receipt Date: 20080410
  Transmission Date: 20081010
  Serious: Yes (Disabling, Other)
  Sender: FDA-Public Use
  Company Number: US022811

PATIENT
  Age: 32 Year
  Sex: Female
  Weight: 46 kg

DRUGS (9)
  1. PROVIGIL [Suspect]
     Indication: MULTIPLE SCLEROSIS
     Dosage: 200 MG QD ORAL
     Route: 048
     Dates: start: 20060201, end: 20060301
  2. PROVIGIL [Suspect]
     Indication: FATIGUE
     Dosage: 200 MG QD ORAL
     Route: 048
     Dates: start: 20061001, end: 20080204
  3. AMITRIPTLINE HCL [Suspect]
     Indication: DEPRESSION
     Dosage: 150 MG QD
     Dates: start: 20060701
  4. AMITRIPTLINE HCL [Suspect]
     Indication: INSOMNIA
     Dosage: 150 MG QD
     Dates: start: 20060701
  5. NIFEDIPINE [Suspect]
     Indication: RAYNAUD'S PHENOMENON
     Dosage: 5 MG BID
     Dates: start: 20040101
  6. MICROGYNON /00022701/ [Suspect]
     Indication: CONTRACEPTION
     Dosage: 30 MG QD
     Dates: start: 20040101
  7. MICROGYNON /00022701/ [Suspect]
     Indication: OSTEOPENIA
     Dosage: 30 MG QD
     Dates: start: 20040101
  8. CALCICHEW [Suspect]
     Indication: OSTEOPENIA
     Dosage: ONE TABLET QD
     Dates: start: 19980101
  9. MULTIVITAMIN SUPPLEMENT [Concomitant]

REACTIONS (7)
  - ARTHRALGIA [None]
  - DRUG INTERACTION [None]
  - IMPAIRED WORK ABILITY [None]
  - INFECTION [None]
  - LUPUS-LIKE SYNDROME [None]
  - SWELLING [None]
  - SYSTEMIC LUPUS ERYTHEMATOSUS [None]
